FAERS Safety Report 5752310-3 (Version None)
Quarter: 2008Q2

REPORT INFORMATION
  Report Type: 
  Country: None (occurrence: None)
  Receive Date: 20080529
  Receipt Date: 20080528
  Transmission Date: 20081010
  Serious: Yes (Other)
  Sender: FDA-Public Use
  Company Number: A0729922A

PATIENT
  Age: 67 Year
  Sex: Female

DRUGS (4)
  1. ALLI [Suspect]
  2. VICODIN [Concomitant]
  3. PERCOCET [Concomitant]
  4. ASPIRIN [Concomitant]

REACTIONS (7)
  - BALANCE DISORDER [None]
  - DIZZINESS [None]
  - HEADACHE [None]
  - HEPATIC ENZYME INCREASED [None]
  - HEPATITIS [None]
  - OFF LABEL USE [None]
  - VERTIGO [None]
